FAERS Safety Report 5253986-X (Version None)
Quarter: 2007Q1

REPORT INFORMATION
  Report Type: 
  Country: None (occurrence: None)
  Receive Date: 20070302
  Receipt Date: 20070219
  Transmission Date: 20070707
  Serious: Yes (Hospitalization)
  Sender: FDA-Public Use
  Company Number: PHEH2007US02182

PATIENT
  Age: 65 Year
  Sex: Female

DRUGS (9)
  1. HYDROCHLOROTHIAZIDE [Suspect]
     Dates: end: 20060101
  2. REBIF [Suspect]
     Indication: MULTIPLE SCLEROSIS
     Dosage: 44 UG, QW3
     Route: 058
     Dates: start: 20020913
  3. TEGRETOL [Concomitant]
     Indication: TRIGEMINAL NEURALGIA
  4. IBUPROFEN [Concomitant]
     Dates: end: 20060101
  5. PREDNISONE [Concomitant]
     Indication: MULTIPLE SCLEROSIS
     Dosage: 8 MG, QD
  6. ANTIHYPERTENSIVES [Concomitant]
     Indication: HYPERTENSION
  7. THEOPHYLLINE [Concomitant]
     Indication: ASTHMA
  8. ADVAIR DISKUS 100/50 [Concomitant]
     Indication: ASTHMA
  9. TRILEPTAL [Suspect]
     Indication: TRIGEMINAL NEURALGIA
     Dates: end: 20060901

REACTIONS (3)
  - CHRONIC OBSTRUCTIVE PULMONARY DISEASE [None]
  - ELECTROLYTE SUBSTITUTION THERAPY [None]
  - HYPONATRAEMIA [None]
